FAERS Safety Report 11217263 (Version 1)
Quarter: 2015Q2

REPORT INFORMATION
  Report Type: Spontaneous
  Country: JP (occurrence: JP)
  Receive Date: 20150625
  Receipt Date: 20150625
  Transmission Date: 20150821
  Serious: Yes (Death, Hospitalization, Other)
  Sender: FDA-Public Use
  Company Number: JP-ROCHE-1595553

PATIENT
  Age: 62 Year
  Sex: Female
  Weight: 37 kg

DRUGS (4)
  1. AVASTIN [Suspect]
     Active Substance: BEVACIZUMAB
     Indication: BREAST CANCER METASTATIC
     Dosage: TREATMENT LINE: 4TH?COMPLETED TREATMENT CYCLE NUMBER: 10?MOST RECENT DOSE: 02/DEC/2012
     Route: 041
     Dates: start: 20120404
  2. PACLITAXEL. [Concomitant]
     Active Substance: PACLITAXEL
     Indication: BREAST CANCER METASTATIC
     Dosage: DOSAGE IS UNCERTAIN.
     Route: 041
     Dates: start: 20120629, end: 20121130
  3. DECADRON [Suspect]
     Active Substance: DEXAMETHASONE
     Indication: ANTIEMETIC SUPPORTIVE CARE
     Dosage: MOST RECENT DOSE : 12/FEB/2013
     Route: 042
     Dates: start: 20130121
  4. NAVELBINE [Suspect]
     Active Substance: VINORELBINE TARTRATE
     Indication: BREAST CANCER METASTATIC
     Dosage: MOST RECENT DOSE RECEIVED ON 12/FEB/2013?COMPLETED TREATMENT CYCLE NUMBER: 3
     Route: 042
     Dates: start: 20130121

REACTIONS (4)
  - Large intestine perforation [Not Recovered/Not Resolved]
  - Breast cancer [Fatal]
  - Constipation [Unknown]
  - Pneumothorax [Recovering/Resolving]

NARRATIVE: CASE EVENT DATE: 20121204
